FAERS Safety Report 7156385-9 (Version None)
Quarter: 2010Q4

REPORT INFORMATION
  Report Type: 
  Country: None (occurrence: None)
  Receive Date: 20101214
  Receipt Date: 20101202
  Transmission Date: 20110411
  Serious: Yes (Other)
  Sender: FDA-Public Use
  Company Number: US-ROCHE-724582

PATIENT
  Sex: Male
  Weight: 113.4 kg

DRUGS (4)
  1. ACCUTANE [Suspect]
     Indication: ACNE
     Route: 048
     Dates: start: 19921201, end: 19930208
  2. ACCUTANE [Suspect]
     Dosage: 80/120 MG EVERY ALTERNATE DAY
     Route: 048
     Dates: start: 19930208, end: 19930601
  3. ERYGEL [Concomitant]
  4. RETIN-A [Concomitant]

REACTIONS (16)
  - ABDOMINAL PAIN [None]
  - ANAL FISSURE [None]
  - COLITIS ULCERATIVE [None]
  - DEPRESSION [None]
  - FOLLICULITIS [None]
  - ILEAL ULCER [None]
  - INFLAMMATORY BOWEL DISEASE [None]
  - IRRITABLE BOWEL SYNDROME [None]
  - MECHANICAL URTICARIA [None]
  - NAUSEA [None]
  - NERVE INJURY [None]
  - PANCREATITIS [None]
  - RECTAL HAEMORRHAGE [None]
  - RETROGRADE EJACULATION [None]
  - SINUSITIS [None]
  - TENDONITIS [None]
